FAERS Safety Report 7539234-6 (Version None)
Quarter: 2011Q2

REPORT INFORMATION
  Report Type: 
  Country: None (occurrence: None)
  Receive Date: 20110524
  Receipt Date: 20110412
  Transmission Date: 20111010
  Serious: No
  Sender: FDA-Public Use
  Company Number: 031141

PATIENT
  Sex: Female
  Weight: 63.5 kg

DRUGS (7)
  1. AZATHIOPRINE [Concomitant]
  2. CIMZIA [Suspect]
     Indication: RHEUMATOID ARTHRITIS
     Dosage: (400 MG1X/MONTH SUBCUTANEOUS)
     Route: 058
     Dates: start: 20100601, end: 20101101
  3. CLARITIN /00917501/ [Concomitant]
  4. PREDNISONE [Concomitant]
  5. DICLOFENAC [Concomitant]
  6. LYRICA [Concomitant]
  7. SYNTHROID [Concomitant]

REACTIONS (2)
  - GASTRIC DILATATION [None]
  - WEIGHT INCREASED [None]
